FAERS Safety Report 21512445 (Version 1)
Quarter: 2022Q4

REPORT INFORMATION
  Report Type: Report from Study
  Country: US (occurrence: US)
  Receive Date: 20221027
  Receipt Date: 20221027
  Transmission Date: 20230112
  Serious: Yes (Hospitalization, Other)
  Sender: FDA-Public Use
  Company Number: US-ABBVIE-22K-163-4498298-00

PATIENT
  Sex: Female

DRUGS (1)
  1. HUMIRA [Suspect]
     Active Substance: ADALIMUMAB
     Indication: Rheumatoid arthritis
     Route: 058
     Dates: end: 2022

REACTIONS (9)
  - Pneumonia [Unknown]
  - Adverse drug reaction [Unknown]
  - Headache [Unknown]
  - Rash [Unknown]
  - Systemic lupus erythematosus [Unknown]
  - Leukaemia [Unknown]
  - Neoplasm malignant [Unknown]
  - Respiratory tract infection [Unknown]
  - Arthralgia [Unknown]

NARRATIVE: CASE EVENT DATE: 20220101
